FAERS Safety Report 17044609 (Version 1)
Quarter: 2019Q4

REPORT INFORMATION
  Report Type: Spontaneous
  Country: US (occurrence: US)
  Receive Date: 20191118
  Receipt Date: 20191118
  Transmission Date: 20200122
  Serious: No
  Sender: FDA-Public Use
  Company Number: US-ASCENT PHARMACEUTICALS, INC.-2076962

PATIENT
  Age: 25 Year
  Sex: Male
  Weight: 60.91 kg

DRUGS (1)
  1. DUTASTERIDE. [Suspect]
     Active Substance: DUTASTERIDE
     Indication: PRODUCT USE IN UNAPPROVED INDICATION
     Route: 048
     Dates: start: 20190729, end: 20190804

REACTIONS (13)
  - Sinus congestion [Unknown]
  - Emergency care examination [Unknown]
  - Dry mouth [Unknown]
  - Feeling abnormal [Unknown]
  - Headache [Unknown]
  - Anxiety [Unknown]
  - Palpitations [Unknown]
  - Chest pain [Unknown]
  - Abdominal discomfort [Unknown]
  - Dizziness [Unknown]
  - Depression [Unknown]
  - Pain [Unknown]
  - Muscular weakness [Unknown]
